APPROVED DRUG PRODUCT: CLINDAMYCIN PHOSPHATE AND TRETINOIN
Active Ingredient: CLINDAMYCIN PHOSPHATE; TRETINOIN
Strength: 1.2%;0.025%
Dosage Form/Route: GEL;TOPICAL
Application: A212845 | Product #001 | TE Code: AB2
Applicant: SOLARIS PHARMA CORP
Approved: Feb 10, 2022 | RLD: No | RS: No | Type: RX